FAERS Safety Report 4845931-3 (Version None)
Quarter: 2005Q4

REPORT INFORMATION
  Report Type: 
  Country: None (occurrence: None)
  Receive Date: 20051201
  Receipt Date: 20051122
  Transmission Date: 20060501
  Serious: Yes (Life-Threatening, Hospitalization)
  Sender: FDA-Public Use
  Company Number: 2005-11-0987

PATIENT
  Age: 49 Year
  Sex: Male
  Weight: 69 kg

DRUGS (11)
  1. PEG-INTRON [Suspect]
     Indication: HEPATITIS C
     Dosage: SEE IMAGE
     Route: 058
     Dates: start: 20050315, end: 20050315
  2. PEG-INTRON [Suspect]
     Indication: HEPATITIS C
     Dosage: SEE IMAGE
     Route: 058
     Dates: start: 20050322, end: 20050816
  3. REBETOL [Suspect]
     Indication: HEPATITIS C
     Dosage: SEE IMAGE
     Route: 048
     Dates: start: 20050315, end: 20050628
  4. REBETOL [Suspect]
     Indication: HEPATITIS C
     Dosage: SEE IMAGE
     Route: 048
     Dates: start: 20050629, end: 20050726
  5. REBETOL [Suspect]
     Indication: HEPATITIS C
     Dosage: SEE IMAGE
     Route: 048
     Dates: start: 20050727, end: 20050809
  6. REBETOL [Suspect]
     Indication: HEPATITIS C
     Dosage: SEE IMAGE
     Route: 048
     Dates: start: 20050810, end: 20050816
  7. FILGRASTIM INJECTABLE SOLUTION [Suspect]
     Indication: NEUTROPHIL COUNT DECREASED
     Dosage: SEE IMAGE
     Route: 058
     Dates: start: 20050809, end: 20050810
  8. FILGRASTIM INJECTABLE SOLUTION [Suspect]
     Indication: NEUTROPHIL COUNT DECREASED
     Dosage: SEE IMAGE
     Route: 058
     Dates: start: 20050816, end: 20050816
  9. FILGRASTIM INJECTABLE SOLUTION [Suspect]
     Indication: NEUTROPHIL COUNT DECREASED
     Dosage: SEE IMAGE
     Route: 058
     Dates: start: 20050920, end: 20050920
  10. FILGRASTIM INJECTABLE SOLUTION [Suspect]
     Indication: NEUTROPHIL COUNT DECREASED
     Dosage: SEE IMAGE
     Route: 058
     Dates: start: 20051004, end: 20051004
  11. KLARICID [Concomitant]

REACTIONS (4)
  - ACUTE MYELOID LEUKAEMIA [None]
  - BONE MARROW FAILURE [None]
  - MYELODYSPLASTIC SYNDROME [None]
  - THERAPY NON-RESPONDER [None]
